FAERS Safety Report 10168643 (Version 3)
Quarter: 2014Q2

REPORT INFORMATION
  Report Type: Report from Study
  Country: IT (occurrence: IT)
  Receive Date: 20140513
  Receipt Date: 20140530
  Transmission Date: 20141212
  Serious: Yes (Death)
  Sender: FDA-Public Use
  Company Number: IT-ROCHE-1245836

PATIENT
  Age: 51 Year
  Sex: Male

DRUGS (6)
  1. VEMURAFENIB [Suspect]
     Indication: MALIGNANT MELANOMA
     Route: 048
     Dates: start: 20120807, end: 20131015
  2. VEMURAFENIB [Suspect]
     Route: 048
     Dates: end: 201402
  3. VEMURAFENIB [Suspect]
     Route: 048
  4. LANSOPRAZOLE [Concomitant]
     Route: 048
  5. SOLDESAM [Concomitant]
     Route: 065
  6. KEPPRA [Concomitant]
     Route: 048

REACTIONS (2)
  - Disease progression [Fatal]
  - Rash [Recovered/Resolved]
